FAERS Safety Report 6314246-9 (Version None)
Quarter: 2009Q3

REPORT INFORMATION
  Report Type: 
  Country: None (occurrence: None)
  Receive Date: 20090817
  Receipt Date: 20090807
  Transmission Date: 20100115
  Serious: Yes (Death, Hospitalization)
  Sender: FDA-Public Use
  Company Number: 2009AL003509

PATIENT
  Age: 90 Year
  Sex: Female

DRUGS (17)
  1. DIGOXIN [Suspect]
     Dosage: 0.125MG, PO
     Route: 048
     Dates: start: 20050321, end: 20070519
  2. INFLAMASE FORTE [Concomitant]
  3. PRED FORTE (15ML) [Concomitant]
  4. PERIACTIN (4MG) [Concomitant]
  5. TOPROL-XL [Concomitant]
  6. DYAZIDE [Concomitant]
  7. CAPTOPRIL [Concomitant]
  8. LASIX [Concomitant]
  9. LANOXIN [Concomitant]
  10. TRIAMCINOLONE [Concomitant]
  11. ATARAX [Concomitant]
  12. CYPROHRPTADINE (4MG) [Concomitant]
  13. PLAVIX [Concomitant]
  14. ZANTAC 150 [Concomitant]
  15. MEGESTROL (40MG/ML) [Concomitant]
  16. CATAPRES TIS [Concomitant]
  17. CIPROFLOXACIN [Concomitant]

REACTIONS (6)
  - ARTERIOSCLEROSIS CORONARY ARTERY [None]
  - CARDIAC FAILURE CONGESTIVE [None]
  - CARDIO-RESPIRATORY ARREST [None]
  - ECONOMIC PROBLEM [None]
  - ILL-DEFINED DISORDER [None]
  - MULTIPLE INJURIES [None]
